FAERS Safety Report 6936663-6 (Version None)
Quarter: 2010Q3

REPORT INFORMATION
  Report Type: 
  Country: None (occurrence: None)
  Receive Date: 20100823
  Receipt Date: 20100817
  Transmission Date: 20110219
  Serious: Yes (Other)
  Sender: FDA-Public Use
  Company Number: JP-ROCHE-721985

PATIENT
  Age: 32 Year
  Sex: Female

DRUGS (1)
  1. ACTEMRA [Suspect]
     Indication: RHEUMATOID ARTHRITIS
     Dosage: UNCERTAIN DOSAGE AND FIVE TIME ADMINISTERING
     Route: 041

REACTIONS (1)
  - PANCYTOPENIA [None]
